FAERS Safety Report 17889829 (Version 1)
Quarter: 2020Q2

REPORT INFORMATION
  Report Type: Report from Study
  Country: CA (occurrence: CA)
  Receive Date: 20200612
  Receipt Date: 20200612
  Transmission Date: 20200714
  Serious: Yes (Life-Threatening)
  Sender: FDA-Public Use
  Company Number: PHHY2019CA196224

PATIENT
  Age: 55 Year
  Sex: Female

DRUGS (17)
  1. PANTOPRAZOLE [Concomitant]
     Active Substance: PANTOPRAZOLE
     Indication: FAMILIAL MEDITERRANEAN FEVER
     Route: 065
  2. CIPRALEX [Concomitant]
     Active Substance: ESCITALOPRAM OXALATE
     Indication: FAMILIAL MEDITERRANEAN FEVER
     Dosage: UNK
     Route: 065
  3. COLCHICINE. [Concomitant]
     Active Substance: COLCHICINE
     Indication: FAMILIAL MEDITERRANEAN FEVER
     Route: 065
  4. KINERET [Concomitant]
     Active Substance: ANAKINRA
     Indication: FAMILIAL MEDITERRANEAN FEVER
     Route: 065
  5. ILARIS [Suspect]
     Active Substance: CANAKINUMAB
     Dosage: 150 MG, EVERY 4 WEEKS
     Route: 058
     Dates: start: 20190819
  6. PREGABALIN. [Concomitant]
     Active Substance: PREGABALIN
     Indication: FAMILIAL MEDITERRANEAN FEVER
     Route: 065
  7. NABILONE [Concomitant]
     Active Substance: NABILONE
     Indication: FAMILIAL MEDITERRANEAN FEVER
     Route: 065
  8. ILARIS [Suspect]
     Active Substance: CANAKINUMAB
     Dosage: 150 MG, EVERY 4 WEEKS
     Route: 058
     Dates: start: 20190930
  9. ILARIS [Suspect]
     Active Substance: CANAKINUMAB
     Dosage: 150 MG, EVERY 4 WEEKS
     Route: 058
     Dates: start: 20191031
  10. DEMEROL [Concomitant]
     Active Substance: MEPERIDINE HYDROCHLORIDE
     Indication: FAMILIAL MEDITERRANEAN FEVER
     Route: 065
  11. SEROQUEL [Concomitant]
     Active Substance: QUETIAPINE FUMARATE
     Indication: FAMILIAL MEDITERRANEAN FEVER
     Route: 065
  12. TEMAZEPAM. [Concomitant]
     Active Substance: TEMAZEPAM
     Indication: FAMILIAL MEDITERRANEAN FEVER
     Route: 065
  13. ILARIS [Suspect]
     Active Substance: CANAKINUMAB
     Indication: FAMILIAL MEDITERRANEAN FEVER
     Dosage: 150 MG, EVERY 8 WEEKS
     Route: 058
     Dates: start: 20180913
  14. ILARIS [Suspect]
     Active Substance: CANAKINUMAB
     Dosage: 150 MG, EVERY 8 WEEKS
     Route: 058
     Dates: start: 20190624
  15. TECTA [Concomitant]
     Active Substance: PANTOPRAZOLE MAGNESIUM
     Indication: GASTRIC ULCER
     Dosage: UNK MG, OT
     Route: 048
  16. HYDROMORPHONE [Concomitant]
     Active Substance: HYDROMORPHONE
     Indication: FAMILIAL MEDITERRANEAN FEVER
     Route: 065
  17. TRAZODONE [Concomitant]
     Active Substance: TRAZODONE HYDROCHLORIDE
     Indication: FAMILIAL MEDITERRANEAN FEVER
     Route: 065

REACTIONS (14)
  - Drug ineffective [Unknown]
  - Pyrexia [Unknown]
  - Pain [Unknown]
  - Constipation [Unknown]
  - Gastric ulcer [Not Recovered/Not Resolved]
  - Body temperature decreased [Unknown]
  - Abdominal pain [Unknown]
  - Feeding disorder [Unknown]
  - Chills [Unknown]
  - Concomitant disease aggravated [Not Recovered/Not Resolved]
  - Malaise [Unknown]
  - Insomnia [Not Recovered/Not Resolved]
  - Familial mediterranean fever [Unknown]
  - Abdominal pain upper [Unknown]

NARRATIVE: CASE EVENT DATE: 20190819
